FAERS Safety Report 14561053 (Version 5)
Quarter: 2019Q2

REPORT INFORMATION
  Report Type: Spontaneous
  Country: IT (occurrence: IT)
  Receive Date: 20180222
  Receipt Date: 20190406
  Transmission Date: 20190711
  Serious: Yes (Death, Other)
  Sender: FDA-Public Use
  Company Number: IT-ACCORD-063800

PATIENT
  Age: 5 Year
  Sex: Female

DRUGS (4)
  1. VINCRISTINE [Suspect]
     Active Substance: VINCRISTINE
     Indication: NEPHROBLASTOMA
     Dosage: PER DOSE ON DAYS 1 AND 8
     Route: 042
  2. BEVACIZUMAB. [Suspect]
     Active Substance: BEVACIZUMAB
     Indication: NEPHROBLASTOMA
     Dosage: PER DOSE ON ON DAY 1, EVERY 21 DAYS
     Route: 042
  3. IRINOTECAN [Suspect]
     Active Substance: IRINOTECAN
     Indication: NEPHROBLASTOMA
     Dosage: PER DOSE ON DAYS 1 TO 5 AND DAYS 8 TO 12
     Route: 042
  4. CEFIXIME/CEFIXIME TRIHYDRATE [Concomitant]
     Indication: PROPHYLAXIS AGAINST DIARRHOEA
     Route: 048

REACTIONS (4)
  - Haematotoxicity [Unknown]
  - Off label use [Unknown]
  - Death [Fatal]
  - Diarrhoea [Unknown]
